FAERS Safety Report 5607524-X (Version None)
Quarter: 2008Q1

REPORT INFORMATION
  Report Type: 
  Country: None (occurrence: None)
  Receive Date: 20080125
  Receipt Date: 20080114
  Transmission Date: 20080703
  Serious: Yes (Death, Hospitalization)
  Sender: FDA-Public Use
  Company Number: CHNY2007GB04109

PATIENT
  Age: 25 Year
  Sex: Male

DRUGS (11)
  1. IBUPROFEN [Suspect]
     Indication: PAIN IN EXTREMITY
     Dosage: 200 MG
  2. CO-TRIMOXAZOLE (NGX)(SULFMETHOXAZOE, TRIMETHOPRIM) UNKNOWN [Suspect]
     Indication: PROPHYLAXIS
  3. CLARITHROMYCIN [Suspect]
     Indication: CHEST DISCOMFORT
     Dosage: 250 MG
  4. CIPROFLOXACIN                   (NGX)(CIPROFLOXACIN) UNKNOWN` [Suspect]
     Indication: CHEST DISCOMFORT
     Dosage: 250 MG
  5. COMBIVIR [Suspect]
  6. EFAVIRENZ [Suspect]
  7. LAMIVUDINE [Suspect]
  8. NEVIRAPINE [Suspect]
  9. TENOFOVIR               (TENOFOVIR) [Suspect]
  10. LOPERAMIDE [Concomitant]
  11. BACTRIM [Concomitant]

REACTIONS (15)
  - AGITATION [None]
  - BIOPSY BILE DUCT ABNORMAL [None]
  - BIOPSY LIVER ABNORMAL [None]
  - BLOOD ALBUMIN DECREASED [None]
  - CD4 LYMPHOCYTES DECREASED [None]
  - CHOLESTASIS [None]
  - CONFUSIONAL STATE [None]
  - COUGH [None]
  - HAEMOGLOBIN DECREASED [None]
  - HEPATIC FAILURE [None]
  - HEPATITIS A [None]
  - INFLAMMATION [None]
  - PAIN IN EXTREMITY [None]
  - SEPSIS [None]
  - VANISHING BILE DUCT SYNDROME [None]
